FAERS Safety Report 6424723-8 (Version None)
Quarter: 2009Q4

REPORT INFORMATION
  Report Type: 
  Country: None (occurrence: None)
  Receive Date: 20091030
  Receipt Date: 20091030
  Transmission Date: 20100525
  Serious: No
  Sender: FDA-Public Use
  Company Number: None

PATIENT
  Age: 61 Year
  Sex: Male
  Weight: 92.53 kg

DRUGS (1)
  1. ALBUTEROL [Suspect]
     Indication: WHEEZING
     Dosage: 3 ML PRN INHALE
     Dates: start: 20081227, end: 20081231

REACTIONS (3)
  - PRURITUS [None]
  - RASH MACULO-PAPULAR [None]
  - URTICARIA [None]
